FAERS Safety Report 13775817 (Version 1)
Quarter: 2017Q3

REPORT INFORMATION
  Report Type: Spontaneous
  Country: JP (occurrence: JP)
  Receive Date: 20170721
  Receipt Date: 20170721
  Transmission Date: 20171127
  Serious: Yes (Hospitalization, Other)
  Sender: FDA-Public Use
  Company Number: JP-MYLANLABS-2017M1043848

PATIENT

DRUGS (5)
  1. METHOTREXATE. [Suspect]
     Active Substance: METHOTREXATE
     Dosage: FOLLOWED BY 10 MG/M ON DAYS 3 AND 6.
     Route: 042
  2. TACROLIMUS. [Suspect]
     Active Substance: TACROLIMUS
     Indication: PROPHYLAXIS AGAINST GRAFT VERSUS HOST DISEASE
     Dosage: FROM DAY -1
     Route: 065
  3. CYTARABINE. [Suspect]
     Active Substance: CYTARABINE
     Indication: BONE MARROW CONDITIONING REGIMEN
     Dosage: IV 3 MG/M 2 EVERY 12 HOURS ON DAYS -5 AND -4
     Route: 042
  4. METHOTREXATE. [Suspect]
     Active Substance: METHOTREXATE
     Indication: PROPHYLAXIS AGAINST GRAFT VERSUS HOST DISEASE
     Dosage: 15 MG/M 2 ON DAY 1, FOLLOWED BY
     Route: 042
  5. CYCLOPHOSPHAMIDE. [Suspect]
     Active Substance: CYCLOPHOSPHAMIDE
     Indication: BONE MARROW CONDITIONING REGIMEN
     Dosage: 60 MG/KG/DAY ON DAYS -3 AND -2
     Route: 065

REACTIONS (5)
  - Cardiac failure [Recovering/Resolving]
  - Infective pericardial effusion [Recovered/Resolved]
  - Viral pericarditis [Recovering/Resolving]
  - Human herpesvirus 6 infection [Recovering/Resolving]
  - Cardiac tamponade [Recovering/Resolving]
